FAERS Safety Report 10734165 (Version 1)
Quarter: 2015Q1

REPORT INFORMATION
  Report Type: Spontaneous
  Country: NZ (occurrence: NZ)
  Receive Date: 20150123
  Receipt Date: 20150123
  Transmission Date: 20150721
  Serious: Yes (Hospitalization, Other)
  Sender: FDA-Public Use
  Company Number: NZ-PFIZER INC-2014229569

PATIENT
  Age: 51 Year
  Sex: Female

DRUGS (13)
  1. ASPIRIN. [Concomitant]
     Active Substance: ASPIRIN
     Dosage: 150 MG, ONCE DAILY IN THE MORNING
  2. ACCUPRIL [Concomitant]
     Active Substance: QUINAPRIL HYDROCHLORIDE
     Dosage: 20 MG, DAILY
  3. FLUOX [Concomitant]
     Dosage: 60 MG, ONCE IN THE MORNING
     Dates: start: 20141211
  4. LANTUS [Concomitant]
     Active Substance: INSULIN GLARGINE
     Dosage: 90 UNITS TWICE DAILY
  5. BETALOC - SLOW RELEASE [Concomitant]
     Dosage: 95 MG, ONCE DAILY IN THE MORNING
  6. CHAMPIX [Suspect]
     Active Substance: VARENICLINE TARTRATE
     Dosage: UNK
     Dates: end: 20120611
  7. INSULIN [Concomitant]
     Active Substance: INSULIN NOS
     Dosage: UNK
  8. LIPITOR [Concomitant]
     Active Substance: ATORVASTATIN CALCIUM
     Dosage: 40 MG, ONCE AT NIGHT
  9. DEPO-PROVERA [Concomitant]
     Active Substance: MEDROXYPROGESTERONE ACETATE
     Indication: DYSFUNCTIONAL UTERINE BLEEDING
     Dosage: 150MG/ML-EVERY THREE MONTHS
  10. GLUCAGON HYDROCHLORIDE [Concomitant]
     Active Substance: GLUCAGON HYDROCHLORIDE
     Indication: HYPOGLYCAEMIA
     Dosage: 1 IU, UNK
  11. METFORMIN HCL [Concomitant]
     Active Substance: METFORMIN HYDROCHLORIDE
     Dosage: 500 MG, 3X/DAY
  12. FLUOX [Concomitant]
     Dosage: 40 MG, ONCE IN THE MORNING
     Dates: start: 20121010
  13. NITROLINGUAL PUMPSPRAY [Concomitant]
     Active Substance: NITROGLYCERIN
     Dosage: 400MCG/1 DOSE, AS NEEDED
     Dates: start: 20120303

REACTIONS (33)
  - Cardiac discomfort [Unknown]
  - Somnolence [Unknown]
  - Head discomfort [Unknown]
  - Affective disorder [Unknown]
  - Sleep disorder [Unknown]
  - Psychiatric symptom [Unknown]
  - Thinking abnormal [Unknown]
  - Depression [Unknown]
  - Headache [Unknown]
  - Pallor [Unknown]
  - Memory impairment [Unknown]
  - Activities of daily living impaired [Unknown]
  - Photophobia [Unknown]
  - Feeling abnormal [Unknown]
  - Fatigue [Unknown]
  - Nasopharyngitis [Unknown]
  - Aggression [Recovering/Resolving]
  - Diarrhoea [Unknown]
  - Balance disorder [Unknown]
  - Meningioma [Unknown]
  - Cold sweat [Unknown]
  - Nausea [Unknown]
  - Paraesthesia [Unknown]
  - Depression [Unknown]
  - Anger [Unknown]
  - Intentional product misuse [Recovered/Resolved]
  - Limb discomfort [Unknown]
  - Blood glucose increased [Unknown]
  - Pneumonia [Unknown]
  - Tearfulness [Unknown]
  - Agitation [Unknown]
  - Blood pressure increased [Unknown]
  - Body temperature decreased [Unknown]

NARRATIVE: CASE EVENT DATE: 2012
